FAERS Safety Report 14831932 (Version 2)
Quarter: 2018Q3

REPORT INFORMATION
  Report Type: Report from Study
  Country: PH (occurrence: PH)
  Receive Date: 20180501
  Receipt Date: 20180924
  Transmission Date: 20181010
  Serious: Yes (Death)
  Sender: FDA-Public Use
  Company Number: PHHY2018PH076347

PATIENT
  Age: 44 Year
  Sex: Female

DRUGS (1)
  1. GLIVEC [Suspect]
     Active Substance: IMATINIB MESYLATE
     Indication: ACUTE LYMPHOCYTIC LEUKAEMIA
     Dosage: 6 DF, QD (A DAY)
     Route: 048
     Dates: start: 20170320

REACTIONS (1)
  - Death [Fatal]

NARRATIVE: CASE EVENT DATE: 20170904
